FAERS Safety Report 4360281-X (Version None)
Quarter: 2004Q2

REPORT INFORMATION
  Report Type: 
  Country: None (occurrence: None)
  Receive Date: 20040518
  Receipt Date: 20040518
  Transmission Date: 20050107
  Serious: Yes (Life-Threatening)
  Sender: FDA-Public Use
  Company Number: None

PATIENT
  Age: 66 Year
  Sex: Female
  Weight: 97.2 kg

DRUGS (3)
  1. AQUAMEPHYTON [Suspect]
     Dosage: 1 MG IV X 1 REPEAT NEXT DAY IF INR GREATER THAN 1.8
     Route: 042
     Dates: start: 20021002, end: 20021002
  2. SIMVASTATIN [Concomitant]
  3. MAXZIDE [Concomitant]

REACTIONS (5)
  - BACK PAIN [None]
  - DIZZINESS [None]
  - FLUSHING [None]
  - SYNCOPE [None]
  - THROAT TIGHTNESS [None]
